FAERS Safety Report 20659943 (Version 1)
Quarter: 2022Q1

REPORT INFORMATION
  Report Type: Spontaneous
  Country: US (occurrence: US)
  Receive Date: 20220331
  Receipt Date: 20220331
  Transmission Date: 20220423
  Serious: Yes (Hospitalization, Other)
  Sender: FDA-Public Use
  Company Number: US-AMICUS THERAPEUTICS, INC.-AMI_1766

PATIENT
  Sex: Female

DRUGS (2)
  1. GALAFOLD [Suspect]
     Active Substance: MIGALASTAT HYDROCHLORIDE
     Indication: Product used for unknown indication
     Dosage: UNK
     Route: 048
  2. AGALSIDASE BETA [Suspect]
     Active Substance: AGALSIDASE BETA
     Indication: Fabry^s disease
     Dosage: UNK
     Route: 065
     Dates: start: 20171030

REACTIONS (7)
  - Internal haemorrhage [Unknown]
  - Dialysis [Unknown]
  - Dementia [Unknown]
  - Temperature intolerance [Unknown]
  - Balance disorder [Unknown]
  - Proteinuria [Unknown]
  - COVID-19 [Unknown]
